FAERS Safety Report 9643272 (Version 2)
Quarter: 2013Q4

REPORT INFORMATION
  Report Type: Spontaneous
  Country: GR (occurrence: GR)
  Receive Date: 20131024
  Receipt Date: 20131030
  Transmission Date: 20140711
  Serious: No
  Sender: FDA-Public Use
  Company Number: GR-009507513-1310GRC010351

PATIENT
  Age: 84 Year
  Sex: Male

DRUGS (2)
  1. NITRO-DYL [Suspect]
     Indication: ANGINA PECTORIS
     Dosage: HALF 5MG/24HRS PATCH
     Route: 062
     Dates: start: 200910, end: 2013
  2. NITRO-DYL [Suspect]
     Dosage: THE PATCHE FOR SHORTER TIME, PLACED IT AT NIGHT AND REMOVES IT IN THE MORNING
     Route: 062
     Dates: start: 2013

REACTIONS (2)
  - Drug ineffective [Unknown]
  - Drug administration error [Unknown]
